FAERS Safety Report 5507586-4 (Version None)
Quarter: 2007Q4

REPORT INFORMATION
  Report Type: 
  Country: None (occurrence: None)
  Receive Date: 20071102
  Receipt Date: 20071019
  Transmission Date: 20080405
  Serious: Yes (Other)
  Sender: FDA-Public Use
  Company Number: MC200700673

PATIENT
  Age: 70 Year
  Sex: Female

DRUGS (3)
  1. ANGIOMAX [Suspect]
     Indication: LASER THERAPY
     Dosage: 0.75 MG/KG, BOLUS, IV BOLUS, 1.75MG/KG, HR, INTRAVENOUS
     Route: 040
     Dates: start: 20071017, end: 20071017
  2. ANGIOMAX [Suspect]
     Indication: LASER THERAPY
     Dosage: 0.75 MG/KG, BOLUS, IV BOLUS, 1.75MG/KG, HR, INTRAVENOUS
     Route: 040
     Dates: start: 20071017
  3. PLAVIX [Suspect]
     Indication: ANTIPLATELET THERAPY
     Dosage: 75 MG, QD, ORAL
     Route: 048

REACTIONS (5)
  - FACTOR VIII DEFICIENCY [None]
  - HAEMATOCRIT DECREASED [None]
  - HAEMOGLOBIN DECREASED [None]
  - MUSCLE HAEMORRHAGE [None]
  - POST PROCEDURAL HAEMORRHAGE [None]
